FAERS Safety Report 5453898-2 (Version None)
Quarter: 2007Q3

REPORT INFORMATION
  Report Type: 
  Country: None (occurrence: None)
  Receive Date: 20070917
  Receipt Date: 20070912
  Transmission Date: 20080115
  Serious: Yes (Other)
  Sender: FDA-Public Use
  Company Number: B0487342A

PATIENT
  Age: 83 Year
  Sex: Female

DRUGS (1)
  1. FORTUM [Suspect]
     Indication: LUNG INFECTION
     Dosage: 2G TWICE PER DAY
     Route: 042
     Dates: start: 20070801

REACTIONS (1)
  - RENAL FAILURE [None]
